FAERS Safety Report 5664887-7 (Version None)
Quarter: 2008Q1

REPORT INFORMATION
  Report Type: 
  Country: None (occurrence: None)
  Receive Date: 20080314
  Receipt Date: 20080303
  Transmission Date: 20080703
  Serious: Yes (Other)
  Sender: FDA-Public Use
  Company Number: US-ELI_LILLY_AND_COMPANY-US200803000500

PATIENT
  Age: 49 Year
  Sex: Male

DRUGS (7)
  1. CYMBALTA [Suspect]
     Dosage: 60 MG, UNK
  2. CYMBALTA [Suspect]
     Dosage: 20 MG, DAILY (1/D)
     Dates: end: 20080217
  3. CYMBALTA [Suspect]
     Dosage: 40 MG, UNK
     Dates: start: 20080218, end: 20080228
  4. CYMBALTA [Suspect]
     Dosage: 20 MG, UNK
     Dates: start: 20080229, end: 20080304
  5. REMERON [Concomitant]
  6. SONERGAN [Concomitant]
  7. KEPPRA [Concomitant]

REACTIONS (4)
  - DEPRESSION [None]
  - DERMATITIS BULLOUS [None]
  - STEVENS-JOHNSON SYNDROME [None]
  - URTICARIA [None]
